FAERS Safety Report 8165400-5 (Version None)
Quarter: 2012Q1

REPORT INFORMATION
  Report Type: 
  Country: None (occurrence: None)
  Receive Date: 20120223
  Receipt Date: 20120223
  Transmission Date: 20120608
  Serious: Yes (Life-Threatening)
  Sender: FDA-Public Use
  Company Number: None

PATIENT
  Sex: Female
  Weight: 87.9978 kg

DRUGS (2)
  1. INVEGA SUSTENNA [Suspect]
     Indication: BIPOLAR DISORDER
     Dosage: 234 MG INJ 1 IM EVERY 4 WKS
     Route: 030
     Dates: start: 20100701, end: 20110801
  2. SAPHRIS [Suspect]
     Indication: BIPOLAR DISORDER
     Dosage: 10 MG ONCE A DAY
     Dates: start: 20120101, end: 20120201

REACTIONS (5)
  - VISION BLURRED [None]
  - DIABETES MELLITUS [None]
  - ABDOMINAL PAIN UPPER [None]
  - DRY EYE [None]
  - BODY TEMPERATURE INCREASED [None]
